FAERS Safety Report 6014597-1 (Version None)
Quarter: 2008Q4

REPORT INFORMATION
  Report Type: 
  Country: None (occurrence: None)
  Receive Date: 20081219
  Receipt Date: 20080909
  Transmission Date: 20090506
  Serious: No
  Sender: FDA-Public Use
  Company Number: A0746581A

PATIENT
  Age: 81 Year
  Sex: Male

DRUGS (7)
  1. AVODART [Suspect]
     Indication: BENIGN PROSTATIC HYPERPLASIA
     Dosage: .5MG PER DAY
     Route: 048
     Dates: start: 20070101, end: 20080801
  2. DIOVAN [Concomitant]
  3. LIPITOR [Concomitant]
  4. PLAVIX [Concomitant]
  5. FLOMAX [Concomitant]
  6. VITAMINS [Concomitant]
  7. ASPIRIN [Concomitant]

REACTIONS (3)
  - BREAST SWELLING [None]
  - BREAST TENDERNESS [None]
  - NIPPLE PAIN [None]
